FAERS Safety Report 7327854-3 (Version None)
Quarter: 2011Q1

REPORT INFORMATION
  Report Type: 
  Country: None (occurrence: None)
  Receive Date: 20110303
  Receipt Date: 20110224
  Transmission Date: 20110831
  Serious: Yes (Other)
  Sender: FDA-Public Use
  Company Number: US-PFIZER INC-2011041044

PATIENT
  Sex: Female

DRUGS (1)
  1. LYRICA [Suspect]
     Dosage: UNK

REACTIONS (10)
  - NAUSEA [None]
  - AMNESIA [None]
  - DIARRHOEA [None]
  - VISION BLURRED [None]
  - PANIC REACTION [None]
  - RASH [None]
  - HEADACHE [None]
  - MOOD SWINGS [None]
  - MALAISE [None]
  - DIZZINESS [None]
